FAERS Safety Report 9275016 (Version 2)
Quarter: 2013Q2

REPORT INFORMATION
  Report Type: Spontaneous
  Country: US (occurrence: US)
  Receive Date: 20130507
  Receipt Date: 20130621
  Transmission Date: 20140414
  Serious: Yes (Other)
  Sender: FDA-Public Use
  Company Number: US-ASTELLAS-2013US004720

PATIENT
  Age: 55 Year
  Sex: Male

DRUGS (4)
  1. XTANDI [Suspect]
     Indication: PROSTATE CANCER
     Dosage: 160 MG, UID/QD
     Route: 048
     Dates: start: 20130312
  2. OXYCONTIN [Suspect]
     Indication: CANCER PAIN
     Dosage: UNK
     Route: 065
  3. FENTANYL [Suspect]
     Indication: CANCER PAIN
     Dosage: UNK
     Route: 065
  4. LUPRON [Concomitant]
     Indication: PRODUCT USED FOR UNKNOWN INDICATION
     Dosage: UNK
     Route: 065

REACTIONS (2)
  - Hallucination [Recovered/Resolved]
  - Tremor [Not Recovered/Not Resolved]
